FAERS Safety Report 5315578-3 (Version None)
Quarter: 2007Q2

REPORT INFORMATION
  Report Type: 
  Country: None (occurrence: None)
  Receive Date: 20070503
  Receipt Date: 20070425
  Transmission Date: 20071010
  Serious: Yes (Hospitalization)
  Sender: FDA-Public Use
  Company Number: JP-ELI_LILLY_AND_COMPANY-JP200704006631

PATIENT
  Age: 22 Year
  Sex: Female

DRUGS (7)
  1. OLANZAPINE [Suspect]
     Dosage: 50 MG, DAILY (1/D)
     Route: 048
     Dates: start: 20060904, end: 20060904
  2. VALPROATE SODIUM [Concomitant]
     Dosage: 26000 MG, UNK
     Route: 048
     Dates: start: 20060904, end: 20060904
  3. LORAZEPAM [Concomitant]
     Dosage: 96 MG, UNK
     Route: 048
     Dates: start: 20060904, end: 20060904
  4. AMOXAPINE [Concomitant]
     Dosage: 540 MG, UNK
     Route: 048
     Dates: start: 20060904, end: 20060904
  5. ETHYL LOFLAZEPATE [Concomitant]
     Dosage: 110 MG, UNK
     Route: 048
     Dates: start: 20060904, end: 20060904
  6. ETIZOLAM [Concomitant]
     Dosage: 20 MG, UNK
     Route: 048
     Dates: start: 20060904, end: 20060904
  7. ANAFRANIL [Concomitant]
     Dosage: 500 MG, UNK
     Route: 048
     Dates: start: 20060904, end: 20060904

REACTIONS (6)
  - BLOOD PRESSURE DECREASED [None]
  - DEPRESSED LEVEL OF CONSCIOUSNESS [None]
  - HEART RATE INCREASED [None]
  - LUNG DISORDER [None]
  - MULTIPLE DRUG OVERDOSE INTENTIONAL [None]
  - SOMNOLENCE [None]
